FAERS Safety Report 14223905 (Version 1)
Quarter: 2017Q4

REPORT INFORMATION
  Report Type: Spontaneous
  Country: US (occurrence: US)
  Receive Date: 20171126
  Receipt Date: 20171126
  Transmission Date: 20180321
  Serious: No
  Sender: FDA-Public Use
  Company Number: PHEH2017US037411

PATIENT
  Sex: Male

DRUGS (1)
  1. ENTRESTO [Suspect]
     Active Substance: SACUBITRIL\VALSARTAN
     Indication: LEFT VENTRICULAR FAILURE
     Dosage: 24/26 MG, BID
     Route: 048

REACTIONS (4)
  - Gait inability [Unknown]
  - Hypotension [Recovered/Resolved]
  - Drug administration error [Unknown]
  - Lethargy [Unknown]
